FAERS Safety Report 5287790-3 (Version None)
Quarter: 2007Q1

REPORT INFORMATION
  Report Type: 
  Country: None (occurrence: None)
  Receive Date: 20070112
  Receipt Date: 20060428
  Transmission Date: 20070707
  Serious: Yes (Death, Hospitalization)
  Sender: FDA-Public Use
  Company Number: 2006057239

PATIENT
  Age: 53 Year
  Sex: Male

DRUGS (12)
  1. DIFLUCAN [Suspect]
     Indication: ILL-DEFINED DISORDER
  2. GEMZAR [Concomitant]
  3. CARBOPLATIN [Concomitant]
  4. ALL OTHER THERAPEUTIC PRODUCTS (ALL OTHER THERAPEUTIC PRODUCTS) [Concomitant]
  5. DILTIAZEM [Concomitant]
  6. HYDROCHLOROTHIAZIDE [Concomitant]
  7. POTASSIUM (POTASSIUM) [Concomitant]
  8. PRILOSEC (PRILOSEC) [Concomitant]
  9. COUMADIN [Concomitant]
  10. ALBUTEROL [Concomitant]
  11. VICODIN [Concomitant]
  12. CYPROHEPTADINE HCL [Concomitant]

REACTIONS (1)
  - CHOLESTASIS [None]
